FAERS Safety Report 14305639 (Version 1)
Quarter: 2017Q4

REPORT INFORMATION
  Report Type: Spontaneous
  Country: DE (occurrence: DE)
  Receive Date: 20171219
  Receipt Date: 20171219
  Transmission Date: 20180321
  Serious: Yes (Other)
  Sender: FDA-Public Use
  Company Number: DE-OTSUKA-16247769

PATIENT
  Age: 9 Year
  Sex: Male

DRUGS (1)
  1. ABILIFY [Suspect]
     Active Substance: ARIPIPRAZOLE
     Indication: TOURETTE^S DISORDER
     Dosage: SLOWLY UP-TITRATED FROM 0.5MG-7.5MG
     Route: 048
     Dates: start: 20110813

REACTIONS (2)
  - Blood prolactin decreased [Unknown]
  - Off label use [Unknown]
